FAERS Safety Report 19666337 (Version 5)
Quarter: 2021Q4

REPORT INFORMATION
  Report Type: Spontaneous
  Country: JP (occurrence: JP)
  Receive Date: 20210806
  Receipt Date: 20211026
  Transmission Date: 20220304
  Serious: Yes (Life-Threatening, Hospitalization, Other)
  Sender: FDA-Public Use
  Company Number: JP-BRISTOL-MYERS SQUIBB COMPANY-BMS-2021-060450

PATIENT
  Age: 62 Year
  Sex: Male
  Weight: 72.8 kg

DRUGS (15)
  1. YERVOY [Suspect]
     Active Substance: IPILIMUMAB
     Indication: Malignant melanoma
     Dosage: 3 MILLIGRAM/KILOGRAM, Q3WK
     Route: 041
     Dates: start: 20210525, end: 20210525
  2. OPDIVO [Suspect]
     Active Substance: NIVOLUMAB
     Indication: Malignant melanoma
     Dosage: 80 MILLIGRAM, Q3WK
     Route: 041
     Dates: start: 20210525, end: 20210525
  3. PREDNISOLONE [Suspect]
     Active Substance: PREDNISOLONE
     Indication: Renal impairment
     Dosage: 100 MILLIGRAM
     Route: 065
     Dates: start: 20210616, end: 20210619
  4. PREDNISOLONE [Suspect]
     Active Substance: PREDNISOLONE
     Indication: Platelet count decreased
     Dosage: 80 MILLIGRAM
     Route: 065
     Dates: start: 20210620
  5. PREDNISOLONE [Suspect]
     Active Substance: PREDNISOLONE
     Indication: Rash
     Dosage: 60 MILLIGRAM
     Route: 065
     Dates: start: 20210621
  6. PREDNISOLONE [Suspect]
     Active Substance: PREDNISOLONE
     Indication: Hepatic function abnormal
     Dosage: 50 MILLIGRAM
     Route: 065
     Dates: start: 20210701
  7. PREDNISOLONE [Suspect]
     Active Substance: PREDNISOLONE
     Indication: Gastric ulcer
     Dosage: 80 MILLIGRAM
     Route: 065
     Dates: start: 20210711
  8. PREDNISOLONE [Suspect]
     Active Substance: PREDNISOLONE
     Indication: Immune-mediated enterocolitis
     Dosage: 80 MILLIGRAM
     Route: 065
     Dates: start: 20210712
  9. PREDNISOLONE [Suspect]
     Active Substance: PREDNISOLONE
     Dosage: 60 MILLIGRAM
     Route: 065
     Dates: start: 20210721
  10. PREDNISOLONE [Suspect]
     Active Substance: PREDNISOLONE
     Dosage: 40 MILLIGRAM
     Route: 065
     Dates: start: 20210728
  11. PREDNISOLONE [Suspect]
     Active Substance: PREDNISOLONE
     Dosage: 30 MILLIGRAM
     Route: 065
     Dates: start: 20210804
  12. PREDNISOLONE [Suspect]
     Active Substance: PREDNISOLONE
     Dosage: 20 MILLIGRAM
     Route: 065
     Dates: start: 20210814
  13. PREDNISOLONE [Suspect]
     Active Substance: PREDNISOLONE
     Dosage: TAPERED DOWN
     Route: 065
     Dates: start: 20210820
  14. AMLODIPINE BESYLATE [Concomitant]
     Active Substance: AMLODIPINE BESYLATE
     Indication: Product used for unknown indication
     Dosage: 10 MILLIGRAM, QD
     Route: 048
  15. TELMISARTAN [Concomitant]
     Active Substance: TELMISARTAN
     Indication: Product used for unknown indication
     Dosage: 40 MILLIGRAM, BID
     Route: 048

REACTIONS (8)
  - Immune-mediated enterocolitis [Recovered/Resolved]
  - Cytomegalovirus enterocolitis [Recovered/Resolved]
  - Platelet count decreased [Recovered/Resolved]
  - Renal impairment [Recovered/Resolved]
  - Rash [Recovered/Resolved]
  - Gastric ulcer [Recovered/Resolved]
  - Malignant neoplasm progression [Unknown]
  - Hepatic function abnormal [Recovered/Resolved]

NARRATIVE: CASE EVENT DATE: 20210604
